FAERS Safety Report 8084234-3 (Version None)
Quarter: 2012Q1

REPORT INFORMATION
  Report Type: 
  Country: None (occurrence: None)
  Receive Date: 20120128
  Receipt Date: 20110303
  Transmission Date: 20120608
  Serious: No
  Sender: FDA-Public Use
  Company Number: US-ABBOTT-11P-163-0709611-00

PATIENT
  Sex: Female
  Weight: 76.272 kg

DRUGS (3)
  1. HUMIRA [Suspect]
     Indication: PSORIASIS
     Dosage: SYRINGE
     Dates: start: 20110101
  2. HUMIRA [Suspect]
     Dosage: PEN
     Dates: start: 20090101, end: 20110101
  3. HUMIRA [Suspect]
     Dosage: SYRINGE
     Dates: start: 20070101, end: 20090101

REACTIONS (2)
  - DIZZINESS [None]
  - VOMITING [None]
